FAERS Safety Report 8618164-2 (Version None)
Quarter: 2012Q3

REPORT INFORMATION
  Report Type: 
  Country: None (occurrence: None)
  Receive Date: 20120824
  Receipt Date: 20120403
  Transmission Date: 20120928
  Serious: Yes (Other)
  Sender: FDA-Public Use
  Company Number: US-ASTRAZENECA-2012SE22263

PATIENT
  Age: 60 Year
  Sex: Female
  Weight: 81.6 kg

DRUGS (2)
  1. SYMBICORT [Suspect]
     Dosage: 160/4.5 MCG, TWO PUFF EVERY DAY
     Route: 055
  2. SYMBICORT [Suspect]
     Dosage: 160/4.5 MCG, ONE PUFF EVERY DAY
     Route: 055
     Dates: start: 20110101

REACTIONS (12)
  - OROPHARYNGEAL PAIN [None]
  - INTENTIONAL DRUG MISUSE [None]
  - VISUAL IMPAIRMENT [None]
  - HYPERTENSION [None]
  - ARTERIOSCLEROTIC RETINOPATHY [None]
  - TREMOR [None]
  - DEPRESSION [None]
  - CATARACT [None]
  - APHONIA [None]
  - MACULOPATHY [None]
  - CUTIS LAXA [None]
  - WEIGHT INCREASED [None]
